FAERS Safety Report 5280203-7 (Version None)
Quarter: 2007Q1

REPORT INFORMATION
  Report Type: 
  Country: None (occurrence: None)
  Receive Date: 20070326
  Receipt Date: 20070326
  Transmission Date: 20070707
  Serious: Yes (Hospitalization)
  Sender: FDA-Public Use
  Company Number: None

PATIENT
  Age: 35 Year
  Sex: Female
  Weight: 92.1 kg

DRUGS (2)
  1. CYCLOSPORINE [Suspect]
     Indication: HEART TRANSPLANT
     Dates: start: 20060524, end: 20060528
  2. CYCLOSPORINE [Suspect]
     Indication: IMMUNOSUPPRESSION
     Dates: start: 20060524, end: 20060528

REACTIONS (3)
  - COMPLICATIONS OF TRANSPLANT SURGERY [None]
  - CONVULSION [None]
  - REVERSIBLE POSTERIOR LEUKOENCEPHALOPATHY SYNDROME [None]
